FAERS Safety Report 9924454 (Version 1)
Quarter: 2014Q1

REPORT INFORMATION
  Report Type: Spontaneous
  Country: US (occurrence: US)
  Receive Date: 20140226
  Receipt Date: 20140226
  Transmission Date: 20141002
  Serious: Yes (Death)
  Sender: FDA-Public Use
  Company Number: US-CELGENEUS-163-50794-14023544

PATIENT
  Sex: 0

DRUGS (2)
  1. VIDAZA [Suspect]
     Indication: MYELODYSPLASTIC SYNDROME
     Dosage: 75 MILLIGRAM/SQ. METER
  2. LORAZEPAM [Concomitant]
     Indication: PROPHYLAXIS
     Route: 065

REACTIONS (1)
  - Myelodysplastic syndrome [Fatal]
